FAERS Safety Report 13416838 (Version 2)
Quarter: 2017Q4

REPORT INFORMATION
  Report Type: Spontaneous
  Country: US (occurrence: US)
  Receive Date: 20170406
  Receipt Date: 20171116
  Transmission Date: 20180320
  Serious: Yes (Other)
  Sender: FDA-Public Use
  Company Number: US-JNJFOC-20170404755

PATIENT
  Age: 72 Year
  Sex: Male

DRUGS (10)
  1. LEVAQUIN [Suspect]
     Active Substance: LEVOFLOXACIN
     Indication: INFECTION
     Route: 048
     Dates: start: 20010919
  2. LEVAQUIN [Suspect]
     Active Substance: LEVOFLOXACIN
     Indication: INFECTION
     Route: 048
     Dates: start: 20150427, end: 20150527
  3. LEVAQUIN [Suspect]
     Active Substance: LEVOFLOXACIN
     Indication: INFECTION
     Route: 048
     Dates: start: 20020103, end: 20030104
  4. LEVAQUIN [Suspect]
     Active Substance: LEVOFLOXACIN
     Indication: PROSTATITIS
     Route: 048
     Dates: start: 20010919
  5. LEVAQUIN [Suspect]
     Active Substance: LEVOFLOXACIN
     Indication: PROSTATITIS
     Route: 048
     Dates: start: 20010829, end: 20010908
  6. LEVAQUIN [Suspect]
     Active Substance: LEVOFLOXACIN
     Indication: PROSTATITIS
     Route: 048
     Dates: start: 20140312, end: 20140611
  7. LEVAQUIN [Suspect]
     Active Substance: LEVOFLOXACIN
     Indication: PROSTATITIS
     Route: 048
     Dates: start: 20150427, end: 20150527
  8. LEVAQUIN [Suspect]
     Active Substance: LEVOFLOXACIN
     Indication: INFECTION
     Route: 048
     Dates: start: 20010829, end: 20010908
  9. LEVAQUIN [Suspect]
     Active Substance: LEVOFLOXACIN
     Indication: PROSTATITIS
     Route: 048
     Dates: start: 20020103, end: 20030104
  10. LEVAQUIN [Suspect]
     Active Substance: LEVOFLOXACIN
     Indication: INFECTION
     Route: 048
     Dates: start: 20140312, end: 20140611

REACTIONS (2)
  - Aortic dissection [Unknown]
  - Aortic aneurysm [Unknown]

NARRATIVE: CASE EVENT DATE: 200911
